FAERS Safety Report 6156104-9 (Version None)
Quarter: 2009Q2

REPORT INFORMATION
  Report Type: 
  Country: None (occurrence: None)
  Receive Date: 20090415
  Receipt Date: 20090409
  Transmission Date: 20091009
  Serious: No
  Sender: FDA-Public Use
  Company Number: US-B.I. PHARMACEUTICALS,INC./RIDGEFIELD-2004-BP-11700BP

PATIENT
  Sex: Male

DRUGS (4)
  1. COMBIVENT [Suspect]
     Indication: CHRONIC OBSTRUCTIVE PULMONARY DISEASE
     Dosage: 8PUF
     Route: 055
     Dates: start: 20000101
  2. FLOVENT [Concomitant]
     Indication: CHRONIC OBSTRUCTIVE PULMONARY DISEASE
     Dates: start: 19980101
  3. CARDURA [Concomitant]
     Indication: BENIGN PROSTATIC HYPERPLASIA
     Dates: start: 20030101
  4. COUMADIN [Concomitant]
     Indication: PULMONARY EMBOLISM
     Dosage: 5MG
     Dates: start: 20030101

REACTIONS (3)
  - AGEUSIA [None]
  - DYSPNOEA [None]
  - LACERATION [None]
